FAERS Safety Report 8394756-3 (Version None)
Quarter: 2012Q2

REPORT INFORMATION
  Report Type: 
  Country: None (occurrence: None)
  Receive Date: 20120525
  Receipt Date: 20120525
  Transmission Date: 20120825
  Serious: Yes (Other)
  Sender: FDA-Public Use
  Company Number: None

PATIENT
  Age: 57 Year
  Sex: Male
  Weight: 103 kg

DRUGS (2)
  1. MULTIHANCE [Suspect]
     Indication: SCAN WITH CONTRAST
     Dosage: IV BOLUS
     Route: 040
     Dates: start: 20120222, end: 20120222
  2. MULTIHANCE [Suspect]
     Indication: NUCLEAR MAGNETIC RESONANCE IMAGING
     Dosage: IV BOLUS
     Route: 040
     Dates: start: 20120222, end: 20120222

REACTIONS (9)
  - BLINDNESS [None]
  - DEAFNESS [None]
  - NAUSEA [None]
  - CEREBROVASCULAR ACCIDENT [None]
  - RENAL FAILURE CHRONIC [None]
  - DIALYSIS [None]
  - VOMITING [None]
  - MYOCARDIAL INFARCTION [None]
  - BLISTER [None]
